FAERS Safety Report 10029021 (Version 10)
Quarter: 2016Q3

REPORT INFORMATION
  Report Type: Report from Study
  Country: CA (occurrence: CA)
  Receive Date: 20140321
  Receipt Date: 20160930
  Transmission Date: 20161108
  Serious: Yes (Hospitalization)
  Sender: FDA-Public Use
  Company Number: PHHY2014CA032261

PATIENT
  Age: 84 Year
  Sex: Female
  Weight: 64.85 kg

DRUGS (5)
  1. SANDOSTATIN [Suspect]
     Active Substance: OCTREOTIDE ACETATE
     Indication: NEUROENDOCRINE TUMOUR
     Dosage: 300 UG, BID
     Route: 058
     Dates: start: 20131211, end: 20140331
  2. ATENOLOL. [Concomitant]
     Active Substance: ATENOLOL
     Indication: PRODUCT USED FOR UNKNOWN INDICATION
     Route: 048
  3. SANDOSTATIN LAR DEPOT [Suspect]
     Active Substance: OCTREOTIDE ACETATE
     Indication: NEUROENDOCRINE TUMOUR
     Dosage: 30 MG, QMO (ONCE A MONTH)
     Route: 030
     Dates: start: 20140318, end: 20141127
  4. SANDOSTATIN LAR DEPOT [Suspect]
     Active Substance: OCTREOTIDE ACETATE
     Dosage: 30 MG, EVERY 25 DAYS
     Route: 030
     Dates: start: 20141223, end: 20160830
  5. SANDOSTATIN LAR DEPOT [Suspect]
     Active Substance: OCTREOTIDE ACETATE
     Dosage: 30 MG, TIW (EVERY 3 WEEKS)
     Route: 030
     Dates: start: 20160923

REACTIONS (11)
  - Heart rate increased [Unknown]
  - Diarrhoea [Unknown]
  - Nervousness [Unknown]
  - Weight decreased [Recovering/Resolving]
  - Atrial fibrillation [Unknown]
  - Injection site discolouration [Unknown]
  - Injection site mass [Unknown]
  - Blood pressure increased [Unknown]
  - Tension [Unknown]
  - Pain [Unknown]
  - Intestinal obstruction [Unknown]

NARRATIVE: CASE EVENT DATE: 201402
